FAERS Safety Report 4299649-9 (Version None)
Quarter: 2004Q1

REPORT INFORMATION
  Report Type: 
  Country: None (occurrence: None)
  Receive Date: 20040219
  Receipt Date: 20031016
  Transmission Date: 20041129
  Serious: Yes (Death, Other)
  Sender: FDA-Public Use
  Company Number: PHBS2003BR11390

PATIENT
  Age: 65 Year
  Sex: Female

DRUGS (6)
  1. GINKGO BILOBA EXTRACT [Concomitant]
     Dosage: 80 MG, UNK
  2. CLONAZEPAM [Concomitant]
     Dosage: .5 MG, UNK
  3. PIRIDOXINE [Concomitant]
     Dosage: 200 MG, UNK
  4. PURAN T4 [Concomitant]
  5. LANSOPRAZOLE [Concomitant]
     Dosage: UNK, QD
  6. ZELMAC [Suspect]
     Indication: CONSTIPATION
     Dosage: 6 MG, UNK
     Route: 048
     Dates: start: 20030101, end: 20030101

REACTIONS (12)
  - ABDOMINAL PAIN [None]
  - ACUTE RESPIRATORY FAILURE [None]
  - COAGULOPATHY [None]
  - DIARRHOEA [None]
  - HAEMORRHAGE [None]
  - INTESTINAL PERFORATION [None]
  - LAPAROTOMY [None]
  - PERITONITIS [None]
  - RENAL FAILURE ACUTE [None]
  - RESPIRATORY FAILURE [None]
  - SEPSIS [None]
  - SEPTIC SHOCK [None]
